FAERS Safety Report 5123731-7 (Version None)
Quarter: 2006Q4

REPORT INFORMATION
  Report Type: 
  Country: None (occurrence: None)
  Receive Date: 20061005
  Receipt Date: 20060913
  Transmission Date: 20070319
  Serious: Yes (Hospitalization, Other)
  Sender: FDA-Public Use
  Company Number: CA200608004898

PATIENT
  Age: 71 Year
  Sex: Male
  Weight: 118.8 kg

DRUGS (15)
  1. LISPR                   O (LISPRO) UNKNOWN [Suspect]
     Indication: DIABETES MELLITUS
     Dosage: 21 U, EACH MORNING; 22 U, EACH MORNING; 30 U, EACH EVENING
     Dates: start: 20031119
  2. LISPR                   O (LISPRO) UNKNOWN [Suspect]
     Indication: DIABETES MELLITUS
     Dosage: 21 U, EACH MORNING; 22 U, EACH MORNING; 30 U, EACH EVENING
     Dates: start: 20031119
  3. LISPR                   O (LISPRO) UNKNOWN [Suspect]
     Indication: DIABETES MELLITUS
     Dosage: 21 U, EACH MORNING; 22 U, EACH MORNING; 30 U, EACH EVENING
     Dates: start: 20031119
  4. HUMAN INSULIN (RDNA ORIGIN) NPH [Suspect]
     Indication: DIABETES MELLITUS
     Dosage: 56 U, EACH EVENING
     Dates: start: 20031101
  5. NITRODUR II (GLYCERYL TRINITRATE) [Concomitant]
  6. MONOCOR (BISOPROLOL FUMARATE) [Concomitant]
  7. FUROSEMIDE [Concomitant]
  8. PLAVIX [Concomitant]
  9. ASPIRIN [Concomitant]
  10. ALTACE [Concomitant]
  11. DILANTIN [Concomitant]
  12. NITROGLYCERIN [Concomitant]
  13. PANTOPRAZOLE SODIUM [Concomitant]
  14. SERAX [Concomitant]
  15. LIPITOR [Concomitant]

REACTIONS (6)
  - BLISTER [None]
  - CHILLS [None]
  - PYREXIA [None]
  - RENAL FAILURE ACUTE [None]
  - SEPSIS [None]
  - STREPTOCOCCAL BACTERAEMIA [None]
